FAERS Safety Report 16114670 (Version 3)
Quarter: 2020Q2

REPORT INFORMATION
  Report Type: Report from Study
  Country: AU (occurrence: AU)
  Receive Date: 20190325
  Receipt Date: 20200514
  Transmission Date: 20200713
  Serious: Yes (Other)
  Sender: FDA-Public Use
  Company Number: AU-JNJFOC-20190307614

PATIENT
  Age: 53 Year
  Sex: Female

DRUGS (2)
  1. STELARA [Suspect]
     Active Substance: USTEKINUMAB
     Route: 058
     Dates: start: 20190814
  2. STELARA [Suspect]
     Active Substance: USTEKINUMAB
     Indication: CROHN^S DISEASE
     Route: 058
     Dates: start: 20190225

REACTIONS (9)
  - Pruritus genital [Recovered/Resolved]
  - Glossitis [Unknown]
  - Product use issue [Unknown]
  - Pruritus [Recovered/Resolved]
  - Infusion related reaction [Unknown]
  - Off label use [Unknown]
  - Mass [Unknown]
  - Sinus pain [Unknown]
  - Lower respiratory tract infection [Unknown]

NARRATIVE: CASE EVENT DATE: 2019
